FAERS Safety Report 8392185-X (Version None)
Quarter: 2012Q2

REPORT INFORMATION
  Report Type: 
  Country: None (occurrence: None)
  Receive Date: 20120529
  Receipt Date: 20120515
  Transmission Date: 20120825
  Serious: Yes (Other)
  Sender: FDA-Public Use
  Company Number: US-JNJFOC-20120514277

PATIENT

DRUGS (2)
  1. INFLIXIMAB, RECOMBINANT [Suspect]
     Indication: PEMPHIGUS
     Dosage: AT WEEKS 0, 2, 6, AND 14)
     Route: 042
  2. PREDNISONE TAB [Concomitant]

REACTIONS (1)
  - LYMPHOBLAST COUNT INCREASED [None]
